FAERS Safety Report 4998537-X (Version None)
Quarter: 2006Q2

REPORT INFORMATION
  Report Type: 
  Country: None (occurrence: None)
  Receive Date: 20060508
  Receipt Date: 20060425
  Transmission Date: 20061013
  Serious: Yes (Hospitalization)
  Sender: FDA-Public Use
  Company Number: 2005145793

PATIENT
  Age: 85 Year
  Sex: Female

DRUGS (14)
  1. SULPERAZON (SULBACTAM, CEFOPERAZONE) [Suspect]
     Indication: PNEUMONIA
     Dosage: 2 GRA (1 GRAM, 2 IN 1 D), INTRAVENOUS
     Route: 042
     Dates: start: 20050107, end: 20050127
  2. SOLU-MEDROL [Concomitant]
  3. FLAVERIC (BENPROPERINE PHOSPHATE) [Concomitant]
  4. THEO-DUR [Concomitant]
  5. ADALAT [Concomitant]
  6. BUFFERIN [Concomitant]
  7. FLUITRAN (TRICHLORMETHIAZIDE) [Concomitant]
  8. DIGOXIN [Concomitant]
  9. LASIX [Concomitant]
  10. LOXONIN (LOXOPROFEN SODIUM) [Concomitant]
  11. AMINOPHYLLIN [Concomitant]
  12. MINOCYCLINE HCL [Concomitant]
  13. HOKUNALIN (TULOBUTEROL HYDROCHLORIDE) [Concomitant]
  14. ZOLPIDEM TARTRATE [Concomitant]

REACTIONS (14)
  - AKATHISIA [None]
  - ATRIAL FIBRILLATION [None]
  - BLOOD GLUCOSE INCREASED [None]
  - CARDIAC FAILURE [None]
  - CONDITION AGGRAVATED [None]
  - CONVULSION [None]
  - DRUG INEFFECTIVE [None]
  - EMPHYSEMA [None]
  - FACIAL SPASM [None]
  - NASOPHARYNGITIS [None]
  - PLEURAL EFFUSION [None]
  - PNEUMONIA [None]
  - RESPIRATORY FAILURE [None]
  - VOMITING [None]
